FAERS Safety Report 7240310-6 (Version None)
Quarter: 2011Q1

REPORT INFORMATION
  Report Type: 
  Country: None (occurrence: None)
  Receive Date: 20110124
  Receipt Date: 20110111
  Transmission Date: 20110831
  Serious: Yes (Hospitalization)
  Sender: FDA-Public Use
  Company Number: FR-PFIZER INC-HQWYE108809AUG04

PATIENT
  Age: 10 Year
  Sex: Female

DRUGS (4)
  1. IBUPROFEN [Suspect]
     Indication: PHARYNGITIS
     Dosage: MAXIMUM OF 30 MG/KG/DAY
     Route: 048
  2. BETAMETHASONE [Concomitant]
     Dosage: UNK
     Route: 065
  3. IBUPROFEN [Suspect]
     Indication: PYREXIA
  4. OXATOMIDE [Concomitant]

REACTIONS (2)
  - VANISHING BILE DUCT SYNDROME [None]
  - STEVENS-JOHNSON SYNDROME [None]
